FAERS Safety Report 7417869-9 (Version None)
Quarter: 2011Q2

REPORT INFORMATION
  Report Type: 
  Country: None (occurrence: None)
  Receive Date: 20110415
  Receipt Date: 20110402
  Transmission Date: 20111010
  Serious: Yes (Other)
  Sender: FDA-Public Use
  Company Number: CA-JNJFOC-20110402103

PATIENT
  Sex: Female
  Weight: 60 kg

DRUGS (4)
  1. SOLU-CORTEF [Concomitant]
     Indication: PREMEDICATION
     Route: 042
  2. BENADRYL [Concomitant]
     Indication: PREMEDICATION
     Route: 042
  3. REMICADE [Suspect]
     Route: 042
  4. REMICADE [Suspect]
     Indication: CROHN'S DISEASE
     Route: 042

REACTIONS (3)
  - INFUSION RELATED REACTION [None]
  - VOMITING [None]
  - NAUSEA [None]
